FAERS Safety Report 23002234 (Version 2)
Quarter: 2024Q4

REPORT INFORMATION
  Report Type: Spontaneous
  Country: US (occurrence: US)
  Receive Date: 20230928
  Receipt Date: 20241017
  Transmission Date: 20250115
  Serious: No
  Sender: SANOFI AVENTIS
  Company Number: US-SANOFI-01772488

PATIENT
  Age: 10 Year
  Sex: Female
  Weight: 10 kg

DRUGS (1)
  1. LUMIZYME [Suspect]
     Active Substance: ALGLUCOSIDASE ALFA
     Indication: Glycogen storage disease type II
     Dosage: 10 ML PER HOUR, ONCE A WEEK.

REACTIONS (1)
  - Off label use [Unknown]
